FAERS Safety Report 24635773 (Version 1)
Quarter: 2024Q4

REPORT INFORMATION
  Report Type: Other
  Country: FR (occurrence: FR)
  Receive Date: 20241119
  Receipt Date: 20241119
  Transmission Date: 20250115
  Serious: Yes (Life-Threatening)
  Sender: ZYDUS PHARM
  Company Number: None

PATIENT

DRUGS (7)
  1. LOPERAMIDE [Suspect]
     Active Substance: LOPERAMIDE
     Indication: Poisoning deliberate
     Dosage: UNK
     Route: 048
     Dates: start: 20240930, end: 20240930
  2. PREGABALIN [Suspect]
     Active Substance: PREGABALIN
     Indication: Poisoning deliberate
     Dosage: UNK
     Route: 048
     Dates: start: 20240930, end: 20240930
  3. MIRTAZAPINE [Suspect]
     Active Substance: MIRTAZAPINE
     Indication: Poisoning deliberate
     Dosage: UNK
     Route: 048
     Dates: start: 20240930, end: 20240930
  4. PROPRANOLOL [Suspect]
     Active Substance: PROPRANOLOL HYDROCHLORIDE
     Indication: Poisoning deliberate
     Dosage: UNK
     Route: 048
     Dates: start: 20240930, end: 20240930
  5. PAROXETINE HYDROCHLORIDE [Suspect]
     Active Substance: PAROXETINE HYDROCHLORIDE
     Indication: Poisoning deliberate
     Dosage: UNK
     Route: 048
     Dates: start: 20240930, end: 20240930
  6. OXAZEPAM [Suspect]
     Active Substance: OXAZEPAM
     Indication: Poisoning deliberate
     Dosage: UNK
     Route: 048
     Dates: start: 20240930, end: 20240930
  7. MIDAZOLAM [Suspect]
     Active Substance: MIDAZOLAM
     Indication: Poisoning deliberate
     Dosage: UNK
     Route: 048
     Dates: start: 20240930, end: 20240930

REACTIONS (5)
  - Mydriasis [Recovered/Resolved]
  - Coma [Recovered/Resolved]
  - Bradycardia [Recovered/Resolved]
  - Cardio-respiratory arrest [Recovered/Resolved]
  - Intentional product misuse [Recovered/Resolved]

NARRATIVE: CASE EVENT DATE: 20240930
